FAERS Safety Report 8846910 (Version 1)
Quarter: 2012Q4

REPORT INFORMATION
  Report Type: Spontaneous
  Country: US (occurrence: None)
  Receive Date: 20121017
  Receipt Date: 20121017
  Transmission Date: 20130627
  Serious: Yes (Other)
  Sender: FDA-Public Use
  Company Number: None

PATIENT
  Age: 13 Year
  Sex: Female
  Weight: 53.52 kg

DRUGS (1)
  1. PULMICORT FLEXHALER [Suspect]
     Route: 055
     Dates: start: 20121013, end: 20121015

REACTIONS (2)
  - Muscle spasms [None]
  - Feeling hot [None]
